FAERS Safety Report 23226198 (Version 1)
Quarter: 2023Q4

REPORT INFORMATION
  Report Type: Spontaneous
  Country: DE (occurrence: DE)
  Receive Date: 20231124
  Receipt Date: 20231124
  Transmission Date: 20240110
  Serious: Yes (Hospitalization)
  Sender: FDA-Public Use
  Company Number: DE-ABBVIE-5510493

PATIENT
  Age: 25 Year
  Sex: Male
  Weight: 90 kg

DRUGS (4)
  1. SKYRIZI [Suspect]
     Active Substance: RISANKIZUMAB-RZAA
     Indication: Crohn^s disease
     Dosage: LAST ADMINISTRATION DATE 2023
     Route: 058
     Dates: start: 20231027
  2. MYRRHINIL-INTEST [Concomitant]
     Indication: Product used for unknown indication
     Dosage: 4X3
     Route: 065
     Dates: start: 20231018
  3. PREDNISOLONE [Concomitant]
     Active Substance: PREDNISOLONE
     Indication: Product used for unknown indication
     Route: 065
     Dates: start: 20231019, end: 20231026
  4. Novamin [Concomitant]
     Indication: Product used for unknown indication
     Dosage: 4X30
     Route: 065
     Dates: start: 20231020

REACTIONS (2)
  - Venous thrombosis limb [Unknown]
  - Rheumatoid arthritis [Unknown]

NARRATIVE: CASE EVENT DATE: 20231114
